FAERS Safety Report 13220252 (Version 2)
Quarter: 2018Q1

REPORT INFORMATION
  Report Type: Spontaneous
  Country: US (occurrence: US)
  Receive Date: 20170211
  Receipt Date: 20180130
  Transmission Date: 20180508
  Serious: No
  Sender: FDA-Public Use
  Company Number: US-ACORDA-ACO_128634_2016

PATIENT
  Sex: Female

DRUGS (4)
  1. AMPYRA [Suspect]
     Active Substance: DALFAMPRIDINE
     Indication: GAIT DISTURBANCE
     Dosage: 10 MG, QD
     Route: 048
     Dates: start: 20150422
  2. TAMOXIFEN [Suspect]
     Active Substance: TAMOXIFEN
     Indication: HORMONE SUPPRESSION THERAPY
  3. AMPYRA [Suspect]
     Active Substance: DALFAMPRIDINE
     Dosage: 10 MG, Q 12 HRS
     Route: 065
     Dates: start: 2016
  4. TAMOXIFEN [Suspect]
     Active Substance: TAMOXIFEN
     Indication: CELL MARKER
     Dosage: UNK
     Route: 065

REACTIONS (5)
  - Hyperhidrosis [Unknown]
  - Rash [Recovered/Resolved]
  - Hot flush [Recovering/Resolving]
  - Menopause [Recovered/Resolved]
  - Inappropriate schedule of drug administration [Unknown]
